FAERS Safety Report 9729580 (Version 1)
Quarter: 2013Q4

REPORT INFORMATION
  Report Type: Spontaneous
  Country: AU (occurrence: AU)
  Receive Date: 20131204
  Receipt Date: 20131204
  Transmission Date: 20140711
  Serious: Yes (Death)
  Sender: FDA-Public Use
  Company Number: AU-BAYER-2013-145784

PATIENT
  Sex: Female

DRUGS (4)
  1. XARELTO [Suspect]
  2. ACETYLSALICYLIC ACID({=100 MG) [Interacting]
  3. CLOPIDOGREL [Interacting]
  4. CLEXANE [Interacting]

REACTIONS (1)
  - Gastrointestinal haemorrhage [Fatal]
